FAERS Safety Report 18850340 (Version 1)
Quarter: 2021Q1

REPORT INFORMATION
  Report Type: Spontaneous
  Country: FR (occurrence: FR)
  Receive Date: 20210205
  Receipt Date: 20210205
  Transmission Date: 20210420
  Serious: Yes (Other)
  Sender: FDA-Public Use
  Company Number: FR-TEVA-2021-FR-1875960

PATIENT
  Sex: Female

DRUGS (1)
  1. CARBOPLATINE TEVA [Suspect]
     Active Substance: CARBOPLATIN
     Route: 065

REACTIONS (2)
  - Anaphylactic shock [Unknown]
  - Malaise [Unknown]
